FAERS Safety Report 7933576-8 (Version None)
Quarter: 2011Q4

REPORT INFORMATION
  Report Type: 
  Country: None (occurrence: None)
  Receive Date: 20111118
  Receipt Date: 20111103
  Transmission Date: 20120403
  Serious: Yes (Other)
  Sender: FDA-Public Use
  Company Number: GGEL20111101435

PATIENT
  Age: 81 Year
  Sex: Female

DRUGS (1)
  1. GABAPENTIN [Suspect]
     Indication: BIPOLAR DISORDER
     Dosage: 800 MILLIGRAM, 1 D

REACTIONS (8)
  - DYSARTHRIA [None]
  - CHEST PAIN [None]
  - INFLUENZA LIKE ILLNESS [None]
  - WITHDRAWAL SYNDROME [None]
  - DROOLING [None]
  - HYPERTENSIVE CRISIS [None]
  - RESPIRATORY DISORDER [None]
  - MENTAL STATUS CHANGES [None]
